FAERS Safety Report 9714462 (Version 1)
Quarter: 2013Q4

REPORT INFORMATION
  Report Type: Spontaneous
  Country: US (occurrence: US)
  Receive Date: 20131126
  Receipt Date: 20131126
  Transmission Date: 20140711
  Serious: No
  Sender: FDA-Public Use
  Company Number: US-BIOGENIDEC-2013BI083095

PATIENT
  Age: 43 Year
  Sex: Female

DRUGS (13)
  1. TECFIDERA [Suspect]
     Indication: PRODUCT USED FOR UNKNOWN INDICATION
     Route: 048
     Dates: start: 20130717, end: 20130723
  2. TECFIDERA [Suspect]
     Indication: PRODUCT USED FOR UNKNOWN INDICATION
     Route: 048
     Dates: start: 20130724
  3. TECFIDERA [Suspect]
     Indication: PRODUCT USED FOR UNKNOWN INDICATION
     Route: 048
  4. MIRALAX [Concomitant]
  5. DITROPAN [Concomitant]
     Route: 048
  6. DEXILANT [Concomitant]
     Route: 048
  7. CYMBALTA [Concomitant]
     Route: 048
  8. TAMSULOSIN [Concomitant]
     Route: 048
  9. VIT C [Concomitant]
     Route: 048
  10. VIT D [Concomitant]
     Route: 048
  11. CRANBERRY [Concomitant]
     Route: 048
  12. PROBIOTIC [Concomitant]
     Route: 048
  13. LYSINE [Concomitant]
     Route: 048

REACTIONS (4)
  - Constipation [Unknown]
  - Fatigue [Unknown]
  - Dyspepsia [Unknown]
  - Diarrhoea [Recovered/Resolved]
